FAERS Safety Report 16825153 (Version 2)
Quarter: 2019Q4

REPORT INFORMATION
  Report Type: Spontaneous
  Country: US (occurrence: US)
  Receive Date: 20190919
  Receipt Date: 20191007
  Transmission Date: 20200122
  Serious: No
  Sender: FDA-Public Use
  Company Number: US-LUPIN PHARMACEUTICALS INC.-2019-06011

PATIENT
  Age: 79 Year
  Sex: Female
  Weight: 82 kg

DRUGS (3)
  1. METOPROLOL. [Concomitant]
     Active Substance: METOPROLOL
     Indication: HYPERTENSION
     Dosage: 25 MILLIGRAM (1/2 TABLET)
     Route: 048
  2. LEVOTHYROXINE SODIUM TABLETS USP, 88 MCG [Suspect]
     Active Substance: LEVOTHYROXINE SODIUM
     Indication: HYPOTHYROIDISM
     Dosage: 88 MICROGRAM, QD
     Route: 048
     Dates: start: 20190807, end: 20190810
  3. LEVOTHYROXINE SODIUM TABLETS USP, 75 MCG [Suspect]
     Active Substance: LEVOTHYROXINE SODIUM
     Indication: HYPOTHYROIDISM
     Dosage: 75 MICROGRAM, QD
     Route: 048
     Dates: start: 20190827, end: 20190831

REACTIONS (7)
  - Gait disturbance [Recovering/Resolving]
  - Product substitution issue [Unknown]
  - Pain [Recovered/Resolved]
  - Feeling abnormal [Recovering/Resolving]
  - Myalgia [Recovered/Resolved]
  - Arthralgia [Recovering/Resolving]
  - Musculoskeletal pain [Recovered/Resolved]

NARRATIVE: CASE EVENT DATE: 20190807
